FAERS Safety Report 14478280 (Version 1)
Quarter: 2018Q1

REPORT INFORMATION
  Report Type: Spontaneous
  Country: GB (occurrence: GB)
  Receive Date: 20180202
  Receipt Date: 20180202
  Transmission Date: 20180509
  Serious: Yes (Other)
  Sender: FDA-Public Use
  Company Number: GB-TEVA-2018-GB-852802

PATIENT
  Age: 43 Year
  Sex: Female
  Weight: 47.17 kg

DRUGS (4)
  1. PROTON PUMP INHIBITOR [Concomitant]
     Active Substance: UNSPECIFIED INGREDIENT
  2. RANITIDINE. [Concomitant]
     Active Substance: RANITIDINE
  3. KALMS [Concomitant]
     Active Substance: HERBALS
     Dosage: BUT NOT FOR SOME WEEKS.
  4. SERTRALINE [Suspect]
     Active Substance: SERTRALINE HYDROCHLORIDE
     Indication: ANXIETY
     Route: 048
     Dates: start: 20171207, end: 20171210

REACTIONS (6)
  - Dyspepsia [Unknown]
  - Abdominal pain upper [Recovered/Resolved with Sequelae]
  - Feeding disorder [Unknown]
  - Weight decreased [Not Recovered/Not Resolved]
  - Oropharyngeal pain [Recovering/Resolving]
  - Gastrooesophageal reflux disease [Not Recovered/Not Resolved]

NARRATIVE: CASE EVENT DATE: 20171207
